FAERS Safety Report 17877776 (Version 2)
Quarter: 2025Q4

REPORT INFORMATION
  Report Type: Report from Study
  Country: AU (occurrence: AU)
  Receive Date: 20200609
  Receipt Date: 20251017
  Transmission Date: 20260117
  Serious: Yes (Death, Other)
  Sender: PURDUE
  Company Number: AU-NAPPMUNDI-GBR-2020-0077077

PATIENT
  Sex: Male

DRUGS (3)
  1. HYDROMORPHONE HYDROCHLORIDE [Suspect]
     Active Substance: HYDROMORPHONE HYDROCHLORIDE
     Indication: Palliative care
     Dosage: DOSE: 1 MILLIGRAM; INTERVAL: 1 DAY
     Route: 058
     Dates: start: 20200121
  2. TADALAFIL [Suspect]
     Active Substance: TADALAFIL
     Indication: Pulmonary arterial hypertension
     Dosage: DOSE: 40 MILLIGRAM; INTERVAL: 1 DAY
     Route: 048
     Dates: end: 20200131
  3. OPSUMIT [Suspect]
     Active Substance: MACITENTAN
     Indication: Pulmonary arterial hypertension
     Dosage: DOSE: 10 MILLIGRAM; INTERVAL: 1 DAY
     Route: 048
     Dates: end: 20200131

REACTIONS (3)
  - Respiratory failure [Fatal]
  - Chronic obstructive pulmonary disease [Fatal]
  - Dyspnoea [Fatal]
